FAERS Safety Report 7604275-7 (Version None)
Quarter: 2011Q3

REPORT INFORMATION
  Report Type: 
  Country: None (occurrence: None)
  Receive Date: 20110712
  Receipt Date: 20110627
  Transmission Date: 20111222
  Serious: Yes (Other)
  Sender: FDA-Public Use
  Company Number: US-JUTA GMBH-2011-10190

PATIENT
  Age: 45 Year
  Sex: Male
  Weight: 70 kg

DRUGS (4)
  1. MORPHINE SULFATE [Suspect]
     Indication: PAIN
     Dosage: 60 MG, TID
     Route: 048
  2. OXYMORPHONE [Suspect]
     Indication: PAIN
     Route: 048
  3. OXYCODONE HCL [Suspect]
     Route: 048
  4. HYDROMORPHONE HCL [Suspect]
     Indication: PAIN
     Dosage: 8 MG, QID
     Route: 048

REACTIONS (2)
  - OSTEOPOROSIS [None]
  - HYPOGONADISM [None]
